FAERS Safety Report 4985996-1 (Version None)
Quarter: 2006Q2

REPORT INFORMATION
  Report Type: 
  Country: None (occurrence: None)
  Receive Date: 20060418
  Receipt Date: 20060202
  Transmission Date: 20061013
  Serious: Yes (Hospitalization, Other)
  Sender: FDA-Public Use
  Company Number: 2006BH007391

PATIENT
  Age: 23 Year
  Sex: Female

DRUGS (2)
  1. ANTICOAGULANT 4% SODIUM CITRATE DEVICE [Suspect]
     Indication: PLASMAPHERESIS
     Dosage: IV
     Route: 042
     Dates: start: 20060131, end: 20060131
  2. SODIUM CHLORIDE 0.9% [Suspect]
     Indication: PLASMAPHERESIS
     Dosage: ONCE; IV
     Route: 042
     Dates: start: 20060131, end: 20060131

REACTIONS (13)
  - APHAGIA [None]
  - BRAIN CONTUSION [None]
  - CEREBRAL HAEMATOMA [None]
  - CONTUSION [None]
  - DIZZINESS [None]
  - FALL [None]
  - FEELING HOT [None]
  - HEAD INJURY [None]
  - HEADACHE [None]
  - LETHARGY [None]
  - POST PROCEDURAL COMPLICATION [None]
  - SYNCOPE [None]
  - VOMITING [None]
